FAERS Safety Report 9201177 (Version 1)
Quarter: 2013Q1

REPORT INFORMATION
  Report Type: Spontaneous
  Country: US (occurrence: None)
  Receive Date: 20130327
  Receipt Date: 20130327
  Transmission Date: 20140127
  Serious: Yes (Other)
  Sender: FDA-Public Use
  Company Number: TPA2013A02352

PATIENT
  Sex: Male

DRUGS (1)
  1. ACTOS (PIOGLITAZONE HYDROCHLORIDE) [Suspect]
     Indication: TYPE 2 DIABETES MELLITUS
     Dates: start: 20040415, end: 201111

REACTIONS (2)
  - Bladder transitional cell carcinoma [None]
  - Metastases to prostate [None]
